FAERS Safety Report 18340655 (Version 1)
Quarter: 2020Q4

REPORT INFORMATION
  Report Type: Spontaneous
  Country: US (occurrence: US)
  Receive Date: 20201002
  Receipt Date: 20201002
  Transmission Date: 20210113
  Serious: Yes (Death, Other)
  Sender: FDA-Public Use
  Company Number: US-PURDUE-USA-2020-0168644

PATIENT
  Age: 35 Year
  Sex: Female

DRUGS (1)
  1. OXYCONTIN [Suspect]
     Active Substance: OXYCODONE HYDROCHLORIDE
     Indication: INJURY
     Dosage: UNKNOWN DOSE
     Route: 048

REACTIONS (7)
  - Drug dependence [Unknown]
  - Mental disorder [Unknown]
  - Drug abuse [Not Recovered/Not Resolved]
  - Bacteraemia [Not Recovered/Not Resolved]
  - Sepsis [Fatal]
  - Overdose [Fatal]
  - Pneumonia pneumococcal [Not Recovered/Not Resolved]

NARRATIVE: CASE EVENT DATE: 20200330
